FAERS Safety Report 24383229 (Version 1)
Quarter: 2024Q4

REPORT INFORMATION
  Report Type: Spontaneous
  Country: US (occurrence: US)
  Receive Date: 20241001
  Receipt Date: 20241001
  Transmission Date: 20250115
  Serious: Yes (Hospitalization)
  Sender: NOVARTIS
  Company Number: US-002147023-NVSC2024US193792

PATIENT
  Sex: Male

DRUGS (1)
  1. PROMACTA [Suspect]
     Active Substance: ELTROMBOPAG OLAMINE
     Indication: Thrombocytopenia
     Dosage: 1 DOSAGE FORM (1 TAB 1 HOUR BEFORE OR 2 HOURS AFTER MEALS)
     Route: 065
     Dates: start: 20221108

REACTIONS (1)
  - Cytokine release syndrome [Unknown]
